FAERS Safety Report 12707242 (Version 1)
Quarter: 2016Q3

REPORT INFORMATION
  Report Type: Spontaneous
  Country: DK (occurrence: DK)
  Receive Date: 20160901
  Receipt Date: 20160901
  Transmission Date: 20161109
  Serious: Yes (Hospitalization)
  Sender: FDA-Public Use
  Company Number: DK-PFIZER INC-2016403435

PATIENT
  Age: 35 Year
  Sex: Male

DRUGS (13)
  1. SEROQUEL [Suspect]
     Active Substance: QUETIAPINE FUMARATE
     Indication: SCHIZOPHRENIA
     Dosage: STRENGTH: 200 MG
     Route: 048
     Dates: start: 20120822, end: 201208
  2. ABILIFY [Suspect]
     Active Substance: ARIPIPRAZOLE
     Indication: SCHIZOPHRENIA
     Dosage: STRENGTH: 10 MG.
     Route: 048
     Dates: start: 20120822, end: 201208
  3. TRUXAL /00012101/ [Suspect]
     Active Substance: CHLORPROTHIXENE
     Indication: SCHIZOPHRENIA
     Dosage: 265 MG, UNK
     Route: 048
     Dates: start: 20120831
  4. RISPERIDON KRKA [Suspect]
     Active Substance: RISPERIDONE
     Indication: SCHIZOPHRENIA
     Dosage: UNK
     Route: 048
     Dates: start: 20150115
  5. ZELDOX [Suspect]
     Active Substance: ZIPRASIDONE
     Dosage: 160 MG, UNK
     Route: 048
  6. IMOCLONE [Suspect]
     Active Substance: ZOPICLONE
     Indication: INSOMNIA
     Dosage: STRENGTH: 7.5 MG
     Route: 048
     Dates: start: 20120611, end: 201208
  7. IMOCLONE [Suspect]
     Active Substance: ZOPICLONE
     Dosage: STRENGHT: 7.5MG
     Route: 048
     Dates: start: 201504
  8. OXAPAX [Suspect]
     Active Substance: OXAZEPAM
     Indication: SEDATION
     Dosage: UNK
     Route: 048
     Dates: start: 20120629, end: 201208
  9. OXAPAX [Suspect]
     Active Substance: OXAZEPAM
     Dosage: UNK
     Dates: start: 201504
  10. CIPRALEX [Suspect]
     Active Substance: ESCITALOPRAM OXALATE
     Indication: DEPRESSION
     Dosage: STRENGTH: 10 MG
     Route: 048
     Dates: start: 20120611, end: 201208
  11. SOLIAN [Suspect]
     Active Substance: AMISULPRIDE
     Indication: SCHIZOPHRENIA
     Dosage: UNK
     Route: 048
     Dates: start: 20121121
  12. ZELDOX [Suspect]
     Active Substance: ZIPRASIDONE
     Indication: SCHIZOPHRENIA
     Dosage: 80 MG, UNK
     Route: 048
     Dates: start: 20120925
  13. SEROQUEL [Suspect]
     Active Substance: QUETIAPINE FUMARATE
     Indication: SCHIZOPHRENIA
     Dosage: UNK
     Route: 048
     Dates: start: 20120625, end: 20120822

REACTIONS (8)
  - Weight increased [Unknown]
  - Depressed mood [Unknown]
  - Social avoidant behaviour [Unknown]
  - Intentional overdose [Unknown]
  - Suicide attempt [Unknown]
  - Sedation [Unknown]
  - Restlessness [Unknown]
  - Suicidal ideation [Unknown]
